FAERS Safety Report 22227240 (Version 1)
Quarter: 2023Q2

REPORT INFORMATION
  Report Type: Report from Study
  Country: US (occurrence: US)
  Receive Date: 20230419
  Receipt Date: 20230419
  Transmission Date: 20230721
  Serious: Yes (Other)
  Sender: FDA-Public Use
  Company Number: US-MYLANLABS-2023M1041261

PATIENT
  Sex: Female

DRUGS (3)
  1. CELEBREX [Suspect]
     Active Substance: CELECOXIB
     Indication: Product used for unknown indication
     Dosage: UNK
     Route: 065
  2. RUXIENCE [Suspect]
     Active Substance: RITUXIMAB-PVVR
     Indication: Product used for unknown indication
     Dosage: UNK
     Route: 065
  3. PREMARIN [Concomitant]
     Active Substance: ESTROGENS, CONJUGATED
     Dosage: UNK
     Route: 065

REACTIONS (8)
  - B-cell lymphoma [Unknown]
  - Pneumonia [Unknown]
  - Renal failure [Unknown]
  - Monoclonal gammopathy [Unknown]
  - Asthenia [Unknown]
  - Coronavirus infection [Unknown]
  - Weight decreased [Unknown]
  - Anaemia [Unknown]
